FAERS Safety Report 9919255 (Version 1)
Quarter: 2014Q1

REPORT INFORMATION
  Report Type: Spontaneous
  Country: PT (occurrence: PT)
  Receive Date: 20140224
  Receipt Date: 20140224
  Transmission Date: 20141002
  Serious: Yes (Other)
  Sender: FDA-Public Use
  Company Number: PT-JNJFOC-20140207734

PATIENT
  Sex: Female

DRUGS (1)
  1. RISPERDAL CONSTA [Suspect]
     Indication: PRODUCT USED FOR UNKNOWN INDICATION
     Dosage: PER 2ML
     Route: 030
     Dates: start: 2013

REACTIONS (5)
  - Cataract [Unknown]
  - Vision blurred [Unknown]
  - Increased appetite [Unknown]
  - Weight increased [Unknown]
  - Visual acuity reduced [Unknown]
